FAERS Safety Report 5360347-1 (Version None)
Quarter: 2007Q2

REPORT INFORMATION
  Report Type: 
  Country: None (occurrence: None)
  Receive Date: 20070618
  Receipt Date: 20070608
  Transmission Date: 20071010
  Serious: Yes (Other)
  Sender: FDA-Public Use
  Company Number: DE-AMGEN-UK216503

PATIENT
  Sex: Female
  Weight: 36 kg

DRUGS (10)
  1. ARANESP [Suspect]
     Indication: RENAL FAILURE CHRONIC
     Route: 042
     Dates: start: 20070102, end: 20070310
  2. METOPROLOL SUCCINATE [Concomitant]
     Route: 048
     Dates: start: 20061218
  3. ENALAPRIL MALEATE [Concomitant]
     Route: 048
     Dates: start: 20070208
  4. CALCIUM ACETATE [Concomitant]
     Route: 048
     Dates: start: 20061110, end: 20061215
  5. NEXIUM [Concomitant]
     Route: 048
     Dates: start: 20061108
  6. METOCLOPRAMIDE [Concomitant]
     Route: 048
     Dates: start: 20061108
  7. AZITHROMYCIN [Concomitant]
     Route: 048
     Dates: start: 20070317, end: 20070320
  8. AMLODIPINE [Concomitant]
     Route: 048
     Dates: start: 20061108, end: 20070222
  9. NOVAMINSULFON-RATIOPHARM [Concomitant]
     Route: 048
     Dates: start: 20061206, end: 20070208
  10. NEORECORMON [Concomitant]
     Route: 042
     Dates: start: 20061116, end: 20070102

REACTIONS (12)
  - ANAEMIA [None]
  - ANTI-ERYTHROPOIETIN ANTIBODY POSITIVE [None]
  - C-REACTIVE PROTEIN INCREASED [None]
  - CATHETER RELATED INFECTION [None]
  - HAEMATOMA [None]
  - IMMUNOGLOBULINS INCREASED [None]
  - INFECTION [None]
  - INFLAMMATION [None]
  - IRON METABOLISM DISORDER [None]
  - LEUKOCYTOSIS [None]
  - LUNG INFILTRATION [None]
  - THROMBOCYTHAEMIA [None]
